FAERS Safety Report 9813008 (Version 1)
Quarter: 2014Q1

REPORT INFORMATION
  Report Type: Spontaneous
  Country: US (occurrence: None)
  Receive Date: 20140109
  Receipt Date: 20140109
  Transmission Date: 20141002
  Serious: Yes (Disabling, Other)
  Sender: FDA-Public Use
  Company Number: None

PATIENT
  Age: 16 Year
  Sex: Male
  Weight: 66.23 kg

DRUGS (2)
  1. MONTELUKAST SOD [Suspect]
     Indication: ASTHMA
     Dosage: 1 PILL/ONCE DAILY  ONCE DAILY TAKEN BY MOUTH
     Route: 048
     Dates: start: 20130901, end: 20140104
  2. MONTELUKAST SOD [Suspect]
     Indication: PULMONARY FUNCTION TEST DECREASED
     Dosage: 1 PILL/ONCE DAILY  ONCE DAILY TAKEN BY MOUTH
     Route: 048
     Dates: start: 20130901, end: 20140104

REACTIONS (9)
  - Urticaria [None]
  - Pyrexia [None]
  - Feeling abnormal [None]
  - Liver injury [None]
  - Vomiting [None]
  - Jaundice [None]
  - Chromaturia [None]
  - Blood bilirubin increased [None]
  - Pruritus generalised [None]
